FAERS Safety Report 5883935-2 (Version None)
Quarter: 2008Q3

REPORT INFORMATION
  Report Type: 
  Country: None (occurrence: None)
  Receive Date: 20080915
  Receipt Date: 20080909
  Transmission Date: 20090109
  Serious: Yes (Hospitalization)
  Sender: FDA-Public Use
  Company Number: B0535285A

PATIENT
  Age: 54 Year
  Sex: Female

DRUGS (5)
  1. AUGMENTIN '125' [Suspect]
     Route: 048
     Dates: start: 20080713, end: 20080721
  2. SERTRALINE [Concomitant]
  3. RIVOTRIL [Concomitant]
  4. UNKNOWN DRUG [Concomitant]
  5. UNKNOWN DRUG [Concomitant]
     Dosage: 1TAB PER DAY
     Route: 065

REACTIONS (8)
  - BLOOD GLUCOSE INCREASED [None]
  - BLOOD IMMUNOGLOBULIN E INCREASED [None]
  - CHRONIC TONSILLITIS [None]
  - HYPERCHOLESTEROLAEMIA [None]
  - PRURITUS [None]
  - RASH MACULO-PAPULAR [None]
  - RHEUMATOID FACTOR INCREASED [None]
  - TOXIC SKIN ERUPTION [None]
